FAERS Safety Report 11012453 (Version 1)
Quarter: 2015Q1

REPORT INFORMATION
  Report Type: Spontaneous
  Country: US (occurrence: None)
  Receive Date: 20150331
  Receipt Date: 20150331
  Transmission Date: 20150721
  Serious: Yes (Hospitalization)
  Sender: FDA-Public Use
  Company Number: 2014000009A

PATIENT
  Age: 31 Year
  Sex: Male

DRUGS (1)
  1. TRAZODONE [Suspect]
     Active Substance: TRAZODONE HYDROCHLORIDE

REACTIONS (1)
  - Priapism [None]
